FAERS Safety Report 20908258 (Version 1)
Quarter: 2022Q2

REPORT INFORMATION
  Report Type: Spontaneous
  Country: FR (occurrence: FR)
  Receive Date: 20220602
  Receipt Date: 20220602
  Transmission Date: 20220721
  Serious: Yes (Death, Other)
  Sender: FDA-Public Use
  Company Number: FR-AFSSAPS-RS20221474

PATIENT
  Age: 58 Year
  Sex: Female
  Weight: 62 kg

DRUGS (4)
  1. VENLAFAXINE [Suspect]
     Active Substance: VENLAFAXINE HYDROCHLORIDE
     Indication: Mixed anxiety and depressive disorder
     Dosage: 75 MG/D FROM 06/04 TO 12/04 THEN 75 MG TWICE A DAY FROM 13/04
     Route: 048
     Dates: start: 20220406
  2. OLANZAPINE [Suspect]
     Active Substance: OLANZAPINE
     Indication: Mixed anxiety and depressive disorder
     Dosage: 7.5 MILLIGRAM
     Route: 048
     Dates: start: 20220406
  3. ZOPICLONE [Suspect]
     Active Substance: ZOPICLONE
     Indication: Mixed anxiety and depressive disorder
     Dosage: 7.5 MILLIGRAM
     Route: 048
     Dates: start: 20220407
  4. DIAZEPAM [Suspect]
     Active Substance: DIAZEPAM
     Indication: Mixed anxiety and depressive disorder
     Dosage: 10MG 4 TIMES A DAY
     Route: 048
     Dates: start: 20220406

REACTIONS (1)
  - Completed suicide [Fatal]

NARRATIVE: CASE EVENT DATE: 20220417
